FAERS Safety Report 5079481-9 (Version None)
Quarter: 2006Q3

REPORT INFORMATION
  Report Type: 
  Country: None (occurrence: None)
  Receive Date: 20060814
  Receipt Date: 20060609
  Transmission Date: 20061208
  Serious: Yes (Hospitalization, Other)
  Sender: FDA-Public Use
  Company Number: US-BRISTOL-MYERS SQUIBB COMPANY-13407382

PATIENT
  Age: 73 Year
  Sex: Female

DRUGS (21)
  1. ERBITUX [Suspect]
     Indication: COLORECTAL CANCER METASTATIC
     Dosage: INITIATED ON 21-NOV-2005/REMOVED FROM STUDY 27-MAR-2006.
     Route: 042
     Dates: start: 20060320, end: 20060320
  2. IRINOTECAN [Suspect]
     Indication: COLORECTAL CANCER METASTATIC
     Dosage: INITIATED ON 21-NOV-2005/REMOVED FROM STUDY ON 27-MAR-2006.
     Route: 042
     Dates: start: 20060313, end: 20060313
  3. COUMADIN [Suspect]
     Indication: PULMONARY EMBOLISM
     Dosage: 5.0 MG DAILY ADMIN FROM 15-JAN-2006-20-JAN-2006/2.5 MG DAILY ADMIN FROM 21-JAN-2006 TO 17-FEB-2006
     Route: 048
     Dates: start: 20060327, end: 20060327
  4. LOVENOX [Suspect]
     Indication: PULMONARY EMBOLISM
     Dosage: 100 MG ADMIN DAILY FROM 12-JAN-2006 TO 19-JAN-2006/100 MG DAILY FROM 17-FEB-2006 TO 24-FEB-2006.
     Route: 058
     Dates: start: 20060224, end: 20060224
  5. ATROPINE [Concomitant]
     Indication: DIARRHOEA
     Route: 042
     Dates: start: 20051121
  6. BENADRYL [Concomitant]
     Indication: PREMEDICATION
  7. BENTYL [Concomitant]
     Indication: ABDOMINAL PAIN
     Route: 048
     Dates: start: 20060310
  8. CENTRUM [Concomitant]
     Indication: MEDICAL DIET
     Route: 048
     Dates: start: 20000101
  9. COMPAZINE [Concomitant]
     Indication: NAUSEA
     Route: 048
     Dates: start: 20060227
  10. DECADRON [Concomitant]
     Indication: PREMEDICATION
     Dates: start: 20051122
  11. EMEND [Concomitant]
     Indication: NAUSEA
     Dosage: 125 MG, 80 MG ON DAYS 1, 2 + 3 OF CHEMO.
     Route: 048
     Dates: start: 20051212
  12. GENTAMICIN [Concomitant]
     Indication: CONJUNCTIVITIS
     Dosage: 0.3% SOLUTION.
     Route: 047
     Dates: start: 20060313
  13. 1% HYDROCORTISONE CREAM [Concomitant]
     Indication: RASH
     Route: 061
     Dates: start: 20060112
  14. IMODIUM [Concomitant]
     Indication: DIARRHOEA
     Route: 048
     Dates: start: 20051101
  15. NEURONTIN [Concomitant]
     Indication: NEUROPATHY
     Dosage: 200 MG TID ADMIN FROM 12-DEC-2005 TO 03-FEB-2006.
     Route: 048
     Dates: start: 20060213
  16. PROCRIT [Concomitant]
     Indication: ANAEMIA
     Dosage: 20-60,000 (UNABLE TO READ UNITS).
     Route: 058
     Dates: start: 20051205
  17. QUESTRAN [Concomitant]
     Indication: DIARRHOEA
     Dosage: 1 PACKET.
     Route: 048
     Dates: start: 20060227
  18. QUESTRAN [Concomitant]
     Indication: ABDOMINAL PAIN
     Dosage: 1 PACKET.
     Route: 048
     Dates: start: 20060227
  19. ZOFRAN [Concomitant]
     Indication: NAUSEA
     Route: 042
     Dates: start: 20051128
  20. ZOFRAN [Concomitant]
     Route: 048
     Dates: start: 20051128
  21. ZOMETA [Concomitant]
     Indication: METASTASES TO BONE
     Route: 042
     Dates: start: 20051205

REACTIONS (16)
  - ABDOMINAL DISTENSION [None]
  - ABDOMINAL PAIN [None]
  - ABDOMINAL PAIN LOWER [None]
  - ACTIVATED PARTIAL THROMBOPLASTIN TIME PROLONGED [None]
  - BLOOD PRESSURE DECREASED [None]
  - DECREASED APPETITE [None]
  - DIARRHOEA [None]
  - FLATULENCE [None]
  - HAEMATOCRIT DECREASED [None]
  - HAEMOGLOBIN DECREASED [None]
  - HEART RATE INCREASED [None]
  - INTERNATIONAL NORMALISED RATIO INCREASED [None]
  - MALIGNANT NEOPLASM PROGRESSION [None]
  - NAUSEA [None]
  - RECTAL HAEMORRHAGE [None]
  - VOMITING [None]
